FAERS Safety Report 9473900 (Version 2)
Quarter: 2013Q3

REPORT INFORMATION
  Report Type: Spontaneous
  Country: US (occurrence: US)
  Receive Date: 20130823
  Receipt Date: 20130823
  Transmission Date: 20140515
  Serious: Yes (Other)
  Sender: FDA-Public Use
  Company Number: US-BRISTOL-MYERS SQUIBB COMPANY-17115940

PATIENT
  Sex: 0

DRUGS (1)
  1. SPRYCEL (CML) TABS 100 MG [Suspect]
     Indication: CHRONIC MYELOID LEUKAEMIA

REACTIONS (1)
  - Malignant neoplasm progression [Unknown]
